FAERS Safety Report 4316050-X (Version None)
Quarter: 2004Q1

REPORT INFORMATION
  Report Type: 
  Country: None (occurrence: None)
  Receive Date: 20040312
  Receipt Date: 20040302
  Transmission Date: 20041129
  Serious: Yes (Hospitalization)
  Sender: FDA-Public Use
  Company Number: PHRM2004FR01027

PATIENT
  Age: 52 Year
  Sex: Female

DRUGS (3)
  1. VOLTAREN [Suspect]
     Indication: ARTHRALGIA
     Dosage: 100 MG / DAY
     Route: 048
  2. CELEBREX [Suspect]
     Indication: ARTHRALGIA
     Dosage: 200 MG / DAY
     Route: 048
  3. RIVOTRIL [Concomitant]
     Indication: ARTHRALGIA
     Dosage: 2 MG / DAY
     Route: 048

REACTIONS (4)
  - ANAEMIA [None]
  - COLONIC POLYP [None]
  - HELICOBACTER GASTRITIS [None]
  - IRON DEFICIENCY [None]
